FAERS Safety Report 7860679-9 (Version None)
Quarter: 2011Q4

REPORT INFORMATION
  Report Type: 
  Country: None (occurrence: None)
  Receive Date: 20111027
  Receipt Date: 20111020
  Transmission Date: 20120403
  Serious: Yes (Hospitalization)
  Sender: FDA-Public Use
  Company Number: US-ABBOTT-11P-163-0867513-00

PATIENT
  Sex: Male
  Weight: 63.56 kg

DRUGS (2)
  1. HUMIRA [Suspect]
     Indication: CROHN'S DISEASE
     Dates: start: 20110101, end: 20110701
  2. VITAMIN TAB [Concomitant]
     Indication: VITAMIN SUPPLEMENTATION

REACTIONS (11)
  - INTESTINAL FISTULA [None]
  - ASTHENIA [None]
  - SMALL INTESTINAL STENOSIS [None]
  - ANAEMIA [None]
  - PYREXIA [None]
  - ABDOMINAL PAIN [None]
  - ABDOMINAL ABSCESS [None]
  - LOCALISED INTRAABDOMINAL FLUID COLLECTION [None]
  - THROMBOSIS IN DEVICE [None]
  - INTESTINAL OBSTRUCTION [None]
  - DEPRESSION [None]
